FAERS Safety Report 25771362 (Version 1)
Quarter: 2025Q3

REPORT INFORMATION
  Report Type: Spontaneous
  Country: US (occurrence: US)
  Receive Date: 20250908
  Receipt Date: 20250908
  Transmission Date: 20251021
  Serious: No
  Sender: DOMPE FARMACEUTICI
  Company Number: US-FARMAPROD-202504-1236

PATIENT
  Sex: Male

DRUGS (4)
  1. OXERVATE [Suspect]
     Active Substance: CENEGERMIN-BKBJ
     Indication: Neurotrophic keratopathy
     Route: 047
     Dates: start: 20250325
  2. OFLOXACIN [Concomitant]
     Active Substance: OFLOXACIN
     Indication: Corneal epithelium defect
  3. GEL TEARS [Concomitant]
     Indication: Dry eye
  4. PREDNISOLONE ACETATE [Concomitant]
     Active Substance: PREDNISOLONE ACETATE
     Indication: Inflammation

REACTIONS (3)
  - Systemic lupus erythematosus rash [Recovered/Resolved]
  - Swelling face [Recovered/Resolved]
  - Eye pain [Recovered/Resolved]
